FAERS Safety Report 8516049-3 (Version None)
Quarter: 2012Q3

REPORT INFORMATION
  Report Type: 
  Country: None (occurrence: None)
  Receive Date: 20120717
  Receipt Date: 20120504
  Transmission Date: 20120928
  Serious: No
  Sender: FDA-Public Use
  Company Number: US-NOVEN-12US004602

PATIENT
  Age: 92 Year
  Sex: Male

DRUGS (4)
  1. FENTANYL [Suspect]
     Indication: PAIN
     Dosage: 25 UG/HR, Q 3DAYS
     Route: 062
     Dates: start: 20120201
  2. FENTANYL [Suspect]
     Dosage: 50 UG/HR, Q 3DAYS
     Route: 062
     Dates: start: 20120201
  3. ASPIRIN [Concomitant]
     Indication: CARDIAC DISORDER
     Dosage: 81 MG, UNK
     Route: 048
  4. HEART MEDICATION [Concomitant]
     Indication: CARDIAC DISORDER
     Route: 048

REACTIONS (2)
  - LOSS OF CONSCIOUSNESS [None]
  - INADEQUATE ANALGESIA [None]
